FAERS Safety Report 8405574 (Version 3)
Quarter: 2013Q2

REPORT INFORMATION
  Report Type: Report from Study
  Country: CA (occurrence: CA)
  Receive Date: 20120214
  Receipt Date: 20130602
  Transmission Date: 20140414
  Serious: Yes (Death, Hospitalization, Other)
  Sender: FDA-Public Use
  Company Number: PHHY2012CA011936

PATIENT
  Age: 88 Year
  Sex: Male

DRUGS (4)
  1. ACLASTA [Suspect]
     Indication: OSTEOPOROSIS
     Dosage: UNK
     Route: 042
     Dates: start: 20090204
  2. ACLASTA [Suspect]
     Dosage: UNK
     Route: 042
     Dates: start: 20100203
  3. ACLASTA [Suspect]
     Dosage: UNK
     Route: 042
     Dates: start: 20110203
  4. ACLASTA [Suspect]
     Dosage: UNK
     Route: 042
     Dates: start: 20120418

REACTIONS (4)
  - Death [Fatal]
  - Pneumonia [Unknown]
  - Herpes zoster [Unknown]
  - Dysphagia [Not Recovered/Not Resolved]
